FAERS Safety Report 7752713-1 (Version None)
Quarter: 2011Q3

REPORT INFORMATION
  Report Type: 
  Country: None (occurrence: None)
  Receive Date: 20110915
  Receipt Date: 20110906
  Transmission Date: 20111222
  Serious: Yes (Other)
  Sender: FDA-Public Use
  Company Number: US-US-EMD SERONO, INC.-7082020

PATIENT
  Sex: Male

DRUGS (2)
  1. REBIF [Suspect]
     Indication: MULTIPLE SCLEROSIS
     Route: 058
     Dates: start: 20091124
  2. TYLENOL-500 [Concomitant]
     Indication: PREMEDICATION

REACTIONS (6)
  - URINARY TRACT DISORDER [None]
  - IRRITABILITY [None]
  - CHLAMYDIAL INFECTION [None]
  - HERPES VIRUS INFECTION [None]
  - INFLUENZA [None]
  - CONSTIPATION [None]
